FAERS Safety Report 10936756 (Version 2)
Quarter: 2015Q2

REPORT INFORMATION
  Report Type: Spontaneous
  Country: US (occurrence: US)
  Receive Date: 20150321
  Receipt Date: 20150525
  Transmission Date: 20150821
  Serious: No
  Sender: FDA-Public Use
  Company Number: US-JNJFOC-20130610422

PATIENT

DRUGS (2)
  1. TOPIRAMATE. [Suspect]
     Active Substance: TOPIRAMATE
     Indication: ALCOHOL ABUSE
     Route: 048
  2. ARIPIPRAZOLE. [Suspect]
     Active Substance: ARIPIPRAZOLE
     Indication: ALCOHOL ABUSE
     Route: 048

REACTIONS (12)
  - Fatigue [Unknown]
  - Paraesthesia [Unknown]
  - Dizziness [Unknown]
  - Nausea [Unknown]
  - Speech disorder [Unknown]
  - Disturbance in attention [Unknown]
  - Product use issue [Unknown]
  - Nervousness [Unknown]
  - Somnolence [Unknown]
  - Dry mouth [Unknown]
  - Dysgeusia [Unknown]
  - Visual impairment [Unknown]
